FAERS Safety Report 8438311-5 (Version None)
Quarter: 2012Q2

REPORT INFORMATION
  Report Type: 
  Country: None (occurrence: None)
  Receive Date: 20120614
  Receipt Date: 20120604
  Transmission Date: 20120825
  Serious: Yes (Death, Other)
  Sender: FDA-Public Use
  Company Number: ES-BAYER-2012-056023

PATIENT
  Age: 49 Year
  Sex: Male

DRUGS (2)
  1. ANAGRELIDE HYDROCHLORIDE [Suspect]
     Indication: ESSENTIAL THROMBOCYTHAEMIA
     Dosage: 3.5 MG, UNK
     Route: 048
     Dates: start: 20081128
  2. ASPIRIN [Suspect]
     Indication: PLATELET AGGREGATION INHIBITION
     Dosage: 100 MG, UNK
     Route: 048
     Dates: start: 20060821

REACTIONS (6)
  - CEREBRAL HAEMORRHAGE [None]
  - HAEMORRHAGE [None]
  - CENTRAL NERVOUS SYSTEM HAEMORRHAGE [None]
  - INJURY [None]
  - SUBDURAL HAEMORRHAGE [None]
  - CEREBROVASCULAR DISORDER [None]
